FAERS Safety Report 22680036 (Version 3)
Quarter: 2024Q1

REPORT INFORMATION
  Report Type: Spontaneous
  Country: US (occurrence: None)
  Receive Date: 20230707
  Receipt Date: 20240223
  Transmission Date: 20240410
  Serious: Yes (Hospitalization, Other)
  Sender: FDA-Public Use
  Company Number: US-Unichem Pharmaceuticals (USA) Inc-UCM202306-000864

PATIENT
  Age: 86 Year
  Sex: Male

DRUGS (4)
  1. MEMANTINE [Suspect]
     Active Substance: MEMANTINE
     Indication: Product used for unknown indication
     Dosage: OVERDOSE WITH 60 PILLS OF UNKNOWN QUANTITY
  2. MEMANTINE [Suspect]
     Active Substance: MEMANTINE
  3. METOPROLOL SUCCINATE [Concomitant]
     Active Substance: METOPROLOL SUCCINATE
     Indication: Product used for unknown indication
  4. MECLIZINE [Concomitant]
     Active Substance: MECLIZINE HYDROCHLORIDE
     Indication: Dizziness

REACTIONS (9)
  - Abnormal behaviour [Recovered/Resolved]
  - Echolalia [Recovered/Resolved]
  - Ventricular extrasystoles [Recovered/Resolved]
  - Mental status changes [Recovered/Resolved]
  - Hypertensive crisis [Recovered/Resolved]
  - Agitation [Recovered/Resolved]
  - Hallucination, auditory [Recovered/Resolved]
  - Somnolence [Recovered/Resolved]
  - Accidental overdose [Unknown]
